FAERS Safety Report 5750613-X (Version None)
Quarter: 2008Q2

REPORT INFORMATION
  Report Type: 
  Country: None (occurrence: None)
  Receive Date: 20080528
  Receipt Date: 20080521
  Transmission Date: 20081010
  Serious: Yes (Hospitalization)
  Sender: FDA-Public Use
  Company Number: US-ROCHE-480626

PATIENT
  Sex: Female

DRUGS (9)
  1. PEGASYS [Suspect]
     Dosage: FORM: PRE-FILLED SYRINGE
     Route: 065
     Dates: start: 20061224, end: 20080502
  2. RIBAVIRIN [Suspect]
     Dosage: PATIENT RESTARTED RIBAVIRIN TABLETS AT 200 MG ON 31 JAN 2007 WHICH GRADUALLY INCREASED TO 800 MG PE+
     Route: 048
     Dates: start: 20070131
  3. RIBAVIRIN [Suspect]
     Dosage: PATIENT STOPPED RIBAVIRIN FOR 6 DAYS BECAUSE HEMOGLOBIN DROPPED DOWN TO 7.
     Route: 048
     Dates: start: 20061224, end: 20070124
  4. RIBAVIRIN [Suspect]
     Route: 048
     Dates: end: 20080502
  5. PROCRIT [Concomitant]
     Dosage: PROCRIT DOSE WAS INCREASED TO TWICE WEEKLY.
  6. COMPAZINE [Concomitant]
     Dosage: AS OF FEBRUARY 27 PATIENT WAS TAKING 1 AS NEEDED; AS OF MARCH 27 PATIENT TAKES 3 TIMES PER DAY.
  7. ENSURE [Concomitant]
     Route: 048
  8. PAXIL [Concomitant]
     Indication: DEPRESSION
     Dosage: DOSE WAS INCREASED.
  9. NEXIUM [Concomitant]

REACTIONS (16)
  - ANAEMIA [None]
  - ANOREXIA [None]
  - ANXIETY [None]
  - ARTHRALGIA [None]
  - ASTHENIA [None]
  - DEPRESSION [None]
  - DIZZINESS [None]
  - FALL [None]
  - FATIGUE [None]
  - INSOMNIA [None]
  - INTERVERTEBRAL DISC PROTRUSION [None]
  - MOOD SWINGS [None]
  - MYALGIA [None]
  - NAUSEA [None]
  - PAIN [None]
  - VOMITING [None]
